FAERS Safety Report 10145103 (Version 1)
Quarter: 2014Q2

REPORT INFORMATION
  Report Type: Spontaneous
  Country: US (occurrence: US)
  Receive Date: 20140501
  Receipt Date: 20140501
  Transmission Date: 20141212
  Serious: No
  Sender: FDA-Public Use
  Company Number: US-BIOGENIDEC-2014BI027067

PATIENT
  Age: 30 Year
  Sex: Female

DRUGS (6)
  1. TYSABRI [Suspect]
     Indication: MULTIPLE SCLEROSIS
     Route: 042
     Dates: start: 20120718, end: 20131217
  2. AMPYRA [Concomitant]
     Indication: GAIT DISTURBANCE
  3. PROVIGIL [Concomitant]
     Indication: FATIGUE
  4. LORTAB [Concomitant]
  5. NUVIGIL [Concomitant]
     Indication: FATIGUE
     Route: 048
  6. TIZANIDINE [Concomitant]

REACTIONS (1)
  - Amenorrhoea [Recovered/Resolved]
